FAERS Safety Report 20412373 (Version 3)
Quarter: 2022Q1

REPORT INFORMATION
  Report Type: Report from Study
  Country: NL (occurrence: NL)
  Receive Date: 20220201
  Receipt Date: 20220223
  Transmission Date: 20220424
  Serious: Yes (Other)
  Sender: FDA-Public Use
  Company Number: NL-CELLTRION HEALTHCARE HUNGARY KFT-2022NL000310

PATIENT

DRUGS (9)
  1. TRASTUZUMAB [Suspect]
     Active Substance: TRASTUZUMAB
     Indication: HER2 positive salivary gland cancer
  2. TRASTUZUMAB [Suspect]
     Active Substance: TRASTUZUMAB
     Indication: HER2 positive salivary gland cancer
  3. TRASTUZUMAB [Suspect]
     Active Substance: TRASTUZUMAB
  4. DOCETAXEL [Suspect]
     Active Substance: DOCETAXEL
     Indication: Metastatic salivary gland cancer
     Dosage: UNK
  5. DOCETAXEL [Suspect]
     Active Substance: DOCETAXEL
     Indication: HER2 positive salivary gland cancer
     Dosage: 75 MG/M2 (6 DOSAGES) EVERY 3 WEEKS
  6. PERTUZUMAB [Suspect]
     Active Substance: PERTUZUMAB
     Indication: Salivary gland cancer recurrent
  7. PERTUZUMAB [Suspect]
     Active Substance: PERTUZUMAB
     Indication: HER2 positive salivary gland cancer
     Dosage: 840 MG (EVERY 3 WEEKS)
     Route: 042
  8. PERTUZUMAB [Suspect]
     Active Substance: PERTUZUMAB
     Indication: Metastatic salivary gland cancer
     Dosage: 420 MG SUBSEQUENTLY (EVERY 3 WEEKS)
     Route: 042
  9. DOCETAXEL [Suspect]
     Active Substance: DOCETAXEL
     Indication: Salivary gland cancer recurrent

REACTIONS (35)
  - Enterocolitis infectious [Unknown]
  - Cardiac failure [Unknown]
  - Lymphocyte count decreased [Unknown]
  - White blood cell count decreased [Unknown]
  - Pharyngeal inflammation [Unknown]
  - Neutrophil count decreased [Unknown]
  - Skin infection [Unknown]
  - Alopecia [Unknown]
  - Lymphoedema [Unknown]
  - Weight decreased [Unknown]
  - Myalgia [Unknown]
  - Aspartate aminotransferase increased [Unknown]
  - Urinary tract infection [Unknown]
  - Muscle spasms [Unknown]
  - Epistaxis [Unknown]
  - Dyspnoea [Unknown]
  - Conjunctivitis [Unknown]
  - Nail disorder [Unknown]
  - Dermatitis acneiform [Unknown]
  - Oedema peripheral [Unknown]
  - Dry eye [Unknown]
  - Recall phenomenon [Unknown]
  - Bone pain [Unknown]
  - Alanine aminotransferase increased [Unknown]
  - Cough [Unknown]
  - Anaemia [Unknown]
  - Platelet count decreased [Unknown]
  - Stomatitis [Unknown]
  - Dysphagia [Unknown]
  - Dysgeusia [Unknown]
  - Nausea [Unknown]
  - Decreased appetite [Unknown]
  - Abdominal pain [Unknown]
  - Diarrhoea [Unknown]
  - Constipation [Unknown]
